FAERS Safety Report 8914586 (Version 2)
Quarter: 2012Q4

REPORT INFORMATION
  Report Type: Report from Study
  Country: US (occurrence: US)
  Receive Date: 20121119
  Receipt Date: 20121210
  Transmission Date: 20130627
  Serious: Yes (Hospitalization)
  Sender: FDA-Public Use
  Company Number: US-EISAI INC-E7389-03240-CLI-US

PATIENT
  Age: 52 Year
  Sex: Female
  Weight: 58 kg

DRUGS (1)
  1. HALAVEN [Suspect]
     Indication: BREAST CANCER
     Route: 041
     Dates: start: 20121009, end: 20121009

REACTIONS (2)
  - Swelling face [Recovered/Resolved]
  - Musculoskeletal discomfort [Recovered/Resolved]
